FAERS Safety Report 10602159 (Version 1)
Quarter: 2014Q4

REPORT INFORMATION
  Report Type: Spontaneous
  Country: US (occurrence: US)
  Receive Date: 20141124
  Receipt Date: 20141124
  Transmission Date: 20150529
  Serious: Yes (Hospitalization)
  Sender: FDA-Public Use
  Company Number: US-TEVA-523484USA

PATIENT
  Age: 17 Year
  Sex: Male

DRUGS (1)
  1. RISPERIDONE. [Suspect]
     Active Substance: RISPERIDONE
     Indication: DEPRESSION
     Dosage: 0.5 MG
     Route: 065

REACTIONS (6)
  - Tremor [Recovering/Resolving]
  - Agitation [Recovering/Resolving]
  - Mutism [Recovering/Resolving]
  - Muscle rigidity [Recovering/Resolving]
  - Hyperthermia [Recovering/Resolving]
  - Neuroleptic malignant syndrome [Recovering/Resolving]
